FAERS Safety Report 4679515-7 (Version None)
Quarter: 2005Q2

REPORT INFORMATION
  Report Type: 
  Country: None (occurrence: None)
  Receive Date: 20050602
  Receipt Date: 20050523
  Transmission Date: 20051028
  Serious: Yes (Other)
  Sender: FDA-Public Use
  Company Number: PHBS2005BE07547

PATIENT
  Age: 67 Year
  Sex: Female

DRUGS (6)
  1. AREDIA [Suspect]
     Indication: MULTIPLE MYELOMA
     Dates: start: 19980101
  2. ZOMETA [Suspect]
     Indication: MULTIPLE MYELOMA
     Dates: start: 20050101
  3. VINCRISTINE + ADRIAMYCIN + DEXAMETHASONE [Concomitant]
     Dates: start: 19970101
  4. INTERFERON [Concomitant]
  5. OXYGEN THERAPY [Concomitant]
     Dates: start: 20030101
  6. OXYGEN THERAPY [Concomitant]
     Dates: start: 20050101

REACTIONS (10)
  - ABSCESS [None]
  - ABSCESS DRAINAGE [None]
  - ANGIOPATHY [None]
  - ASEPTIC NECROSIS BONE [None]
  - BONE OPERATION [None]
  - HYPERBARIC OXYGEN THERAPY [None]
  - INFECTION [None]
  - MOUTH ULCERATION [None]
  - PRIMARY SEQUESTRUM [None]
  - WOUND DEBRIDEMENT [None]
